FAERS Safety Report 8516281-9 (Version None)
Quarter: 2012Q3

REPORT INFORMATION
  Report Type: 
  Country: None (occurrence: None)
  Receive Date: 20120717
  Receipt Date: 20120709
  Transmission Date: 20120928
  Serious: Yes (Hospitalization)
  Sender: FDA-Public Use
  Company Number: US-ABBOTT-12P-163-0954220-00

PATIENT
  Sex: Female
  Weight: 96.248 kg

DRUGS (13)
  1. ATENOLOL [Concomitant]
     Indication: HYPERTENSION
  2. RHINOCORT [Concomitant]
     Indication: SEASONAL ALLERGY
     Dosage: SPRAY
     Route: 045
  3. HUMIRA [Suspect]
     Indication: RHEUMATOID ARTHRITIS
  4. ALLOPURINOL [Concomitant]
     Indication: GOUT
  5. METHOTREXATE [Concomitant]
     Indication: RHEUMATOID ARTHRITIS
  6. PROTONIX [Concomitant]
     Indication: GASTROOESOPHAGEAL REFLUX DISEASE
  7. METFORMIN HYDROCHLORIDE [Concomitant]
     Indication: DIABETES MELLITUS
  8. FOLIC ACID [Concomitant]
     Indication: VITAMIN SUPPLEMENTATION
  9. CELEBREX [Concomitant]
     Indication: ARTHRITIS
  10. ZYRTEC [Concomitant]
     Indication: HYPERSENSITIVITY
  11. POTASSIUM CHLORIDE [Concomitant]
     Indication: MINERAL SUPPLEMENTATION
  12. ACETAMINOPHEN [Concomitant]
     Indication: RHEUMATOID ARTHRITIS
  13. HYDROCHLOROTHIAZIDE [Concomitant]
     Indication: HYPERTENSION

REACTIONS (4)
  - RHEUMATOID ARTHRITIS [None]
  - BREAST CANCER IN SITU [None]
  - TOOTH FRACTURE [None]
  - BREAST MASS [None]
